FAERS Safety Report 5479570-0 (Version None)
Quarter: 2007Q3

REPORT INFORMATION
  Report Type: 
  Country: None (occurrence: None)
  Receive Date: 20070906
  Receipt Date: 20060905
  Transmission Date: 20080115
  Serious: Yes (Hospitalization)
  Sender: FDA-Public Use
  Company Number: HQWYE370206SEP06

PATIENT
  Age: 81 Year
  Sex: Female
  Weight: 62.65 kg

DRUGS (5)
  1. ADVIL [Suspect]
     Indication: ARTHRALGIA
     Dosage: 2 CAPSULE 1X PER 1 DAY, ORAL; 2 CAPSULE 2X PER 1 DAY, ORAL
     Route: 048
     Dates: end: 20060101
  2. ADVIL [Suspect]
     Indication: HEADACHE
     Dosage: 2 CAPSULE 1X PER 1 DAY, ORAL; 2 CAPSULE 2X PER 1 DAY, ORAL
     Route: 048
     Dates: end: 20060101
  3. ADVIL [Suspect]
     Indication: ARTHRALGIA
     Dosage: 2 CAPSULE 1X PER 1 DAY, ORAL; 2 CAPSULE 2X PER 1 DAY, ORAL
     Route: 048
     Dates: start: 20060905
  4. ADVIL [Suspect]
     Indication: HEADACHE
     Dosage: 2 CAPSULE 1X PER 1 DAY, ORAL; 2 CAPSULE 2X PER 1 DAY, ORAL
     Route: 048
     Dates: start: 20060905
  5. TOPROL-XL [Concomitant]

REACTIONS (1)
  - BLOOD PRESSURE INCREASED [None]
